FAERS Safety Report 9071159 (Version 1)
Quarter: 2013Q1

REPORT INFORMATION
  Report Type: Spontaneous
  Country: None (occurrence: US)
  Receive Date: 20130206
  Receipt Date: 20130206
  Transmission Date: 20140127
  Serious: No
  Sender: FDA-Public Use
  Company Number: US-ALLERGAN-1209314US

PATIENT
  Sex: Female

DRUGS (1)
  1. RESTASIS? [Suspect]
     Indication: PRODUCT USED FOR UNKNOWN INDICATION
     Dosage: 2 GTT, BID
     Route: 047
     Dates: start: 201206

REACTIONS (2)
  - Instillation site pain [Unknown]
  - Drug ineffective [Unknown]
